FAERS Safety Report 9804102 (Version 2)
Quarter: 2014Q1

REPORT INFORMATION
  Report Type: Spontaneous
  Country: US (occurrence: None)
  Receive Date: 20140103
  Receipt Date: 20140311
  Transmission Date: 20141002
  Serious: Yes (Other)
  Sender: FDA-Public Use
  Company Number: 2013-US-005025

PATIENT
  Age: 61 Year
  Sex: Female
  Weight: 123.4 kg

DRUGS (9)
  1. XYREM [Suspect]
     Indication: INSOMNIA
     Route: 048
     Dates: start: 200806, end: 200807
  2. PROVENTIL (SALBUTAMOL) [Concomitant]
  3. LEXAPRO (ESCITALOPRAM OXALATE) [Concomitant]
  4. KLOR-CON (POTASSIUM CHLORIDE) [Concomitant]
  5. FENOFIBRATE (FENOFIBRATE) (FENOFIBRATE) [Concomitant]
  6. VICTOZA(LIRAGLUTIDE) SOLUTION FOR INJECTION, 6MG/ML [Concomitant]
  7. LEVOTHYROXINE SODIUM [Concomitant]
  8. WARFARIN SODIUM [Concomitant]
  9. MIDODRIN HCL [Concomitant]

REACTIONS (4)
  - Transient ischaemic attack [None]
  - Memory impairment [None]
  - Hypotension [None]
  - Off label use [None]
